FAERS Safety Report 8930671 (Version 1)
Quarter: 2012Q4

REPORT INFORMATION
  Report Type: 
  Country: US (occurrence: US)
  Receive Date: 20121128
  Receipt Date: 20121128
  Transmission Date: 20130627
  Serious: No
  Sender: FDA-Public Use
  Company Number: US-009507513-1211USA009947

PATIENT

DRUGS (1)
  1. COZAAR [Suspect]
     Dosage: 100 mg, UNK
     Route: 048

REACTIONS (3)
  - Atrial fibrillation [Unknown]
  - Neuropathy peripheral [Unknown]
  - Malaise [Unknown]
